FAERS Safety Report 18908131 (Version 2)
Quarter: 2021Q1

REPORT INFORMATION
  Report Type: Spontaneous
  Country: GR (occurrence: GR)
  Receive Date: 20210218
  Receipt Date: 20210315
  Transmission Date: 20210420
  Serious: No
  Sender: FDA-Public Use
  Company Number: GR-EUSA PHARMA (UK) LIMITED-2021GR000025

PATIENT
  Age: 56 Year
  Sex: Female

DRUGS (16)
  1. SYLVANT [Suspect]
     Active Substance: SILTUXIMAB
     Dosage: UNK, CYCLE 2
     Route: 065
  2. SYLVANT [Suspect]
     Active Substance: SILTUXIMAB
     Dosage: UNK, CYCLE 4
     Route: 065
  3. SYLVANT [Suspect]
     Active Substance: SILTUXIMAB
     Dosage: UNK, CYCLE 6
     Route: 065
  4. SYLVANT [Suspect]
     Active Substance: SILTUXIMAB
     Indication: CASTLEMAN^S DISEASE
     Dosage: UNK, CYCLE 1
     Route: 065
     Dates: start: 20200326
  5. SYLVANT [Suspect]
     Active Substance: SILTUXIMAB
     Dosage: UNK, CYCLE 8
     Route: 065
  6. SYLVANT [Suspect]
     Active Substance: SILTUXIMAB
     Dosage: UNK, CYCLE 9
     Route: 065
  7. SYLVANT [Suspect]
     Active Substance: SILTUXIMAB
     Dosage: UNK, CYCLE 11
     Route: 065
  8. SYLVANT [Suspect]
     Active Substance: SILTUXIMAB
     Dosage: UNK
     Route: 065
     Dates: end: 20210211
  9. SYLVANT [Suspect]
     Active Substance: SILTUXIMAB
     Dosage: UNK, CYCLE 3
     Route: 065
  10. SYLVANT [Suspect]
     Active Substance: SILTUXIMAB
     Dosage: UNK, CYCLE 7
     Route: 065
  11. SYLVANT [Suspect]
     Active Substance: SILTUXIMAB
     Dosage: UNK, CYCLE 5
     Route: 065
  12. SYLVANT [Suspect]
     Active Substance: SILTUXIMAB
     Dosage: UNK, CYCLE 10
     Route: 065
  13. IRON [Concomitant]
     Active Substance: IRON
     Indication: ANAEMIA
     Dosage: UNK
     Route: 042
  14. ERYTHROPOIETIN [Concomitant]
     Active Substance: ERYTHROPOIETIN
     Indication: ANAEMIA
     Dosage: UNK
     Route: 065
  15. SYLVANT [Suspect]
     Active Substance: SILTUXIMAB
     Dosage: UNK
     Route: 065
     Dates: end: 20210304
  16. SYLVANT [Suspect]
     Active Substance: SILTUXIMAB
     Dosage: UNK, CYCLE 12
     Route: 065
     Dates: end: 20201126

REACTIONS (1)
  - Haematocrit increased [Unknown]

NARRATIVE: CASE EVENT DATE: 202011
